FAERS Safety Report 9528413 (Version 1)
Quarter: 2013Q1

REPORT INFORMATION
  Report Type: Spontaneous
  Country: US (occurrence: None)
  Receive Date: 20130314
  Receipt Date: 20130314
  Transmission Date: 20140127
  Serious: No
  Sender: FDA-Public Use
  Company Number: 1301USA011311

PATIENT
  Age: 54 Year
  Sex: Female

DRUGS (3)
  1. VICTRELIS (BOCEPREVIR) CAPSULE, 200 MG [Suspect]
     Indication: CHRONIC HEPATITIS C
     Route: 048
     Dates: start: 20121222, end: 20121222
  2. RIBASPHERE (RIBAVIRIN) [Suspect]
     Route: 048
  3. PEGASYS (PEGINTERFERON ALFA-2A) [Suspect]
     Route: 058

REACTIONS (18)
  - Pruritus [None]
  - Swelling face [None]
  - Blood count abnormal [None]
  - Hypoaesthesia oral [None]
  - Paraesthesia oral [None]
  - Hypoaesthesia [None]
  - Paraesthesia [None]
  - Local swelling [None]
  - Abdominal pain upper [None]
  - Dysgeusia [None]
  - Laboratory test abnormal [None]
  - Fatigue [None]
  - Abdominal pain upper [None]
  - Nausea [None]
  - Dysgeusia [None]
  - Headache [None]
  - Joint swelling [None]
  - Gait disturbance [None]
